FAERS Safety Report 5525468-9 (Version None)
Quarter: 2007Q4

REPORT INFORMATION
  Report Type: 
  Country: None (occurrence: None)
  Receive Date: 20071120
  Receipt Date: 20071120
  Transmission Date: 20080405
  Serious: Yes (Other)
  Sender: FDA-Public Use
  Company Number: None

PATIENT
  Age: 41 Year
  Sex: Male

DRUGS (1)
  1. GEODON [Suspect]
     Indication: SCHIZOAFFECTIVE DISORDER
     Dosage: 240 MG BEDTIME PO
     Route: 048
     Dates: start: 20070822, end: 20071019

REACTIONS (2)
  - ELECTROCARDIOGRAM QT PROLONGED [None]
  - SEDATION [None]
